FAERS Safety Report 10071609 (Version 1)
Quarter: 2014Q2

REPORT INFORMATION
  Report Type: Spontaneous
  Country: GB (occurrence: GB)
  Receive Date: 20140410
  Receipt Date: 20140410
  Transmission Date: 20141212
  Serious: Yes (Disabling)
  Sender: FDA-Public Use
  Company Number: GB-MYLANLABS-2014S1007688

PATIENT
  Age: 18 Year
  Sex: Female

DRUGS (2)
  1. METHYLPREDNISOLONE [Suspect]
     Indication: OPTIC NEURITIS
     Route: 042
  2. PREDNISOLONE [Suspect]
     Indication: OPTIC NEURITIS
     Route: 048

REACTIONS (3)
  - Necrotising herpetic retinopathy [Not Recovered/Not Resolved]
  - Blindness [Not Recovered/Not Resolved]
  - Retinal detachment [Not Recovered/Not Resolved]
